FAERS Safety Report 15659506 (Version 1)
Quarter: 2018Q4

REPORT INFORMATION
  Report Type: Spontaneous
  Country: PT (occurrence: PT)
  Receive Date: 20181127
  Receipt Date: 20181127
  Transmission Date: 20190205
  Serious: Yes (Hospitalization, Other)
  Sender: FDA-Public Use
  Company Number: PT-009507513-1810PRT009975

PATIENT
  Age: 92 Year
  Sex: Female

DRUGS (1)
  1. ZERBAXA [Suspect]
     Active Substance: CEFTOLOZANE SULFATE\TAZOBACTAM SODIUM
     Indication: DEVICE RELATED INFECTION
     Dosage: 1.5 GRAM, Q8H

REACTIONS (3)
  - Drug ineffective for unapproved indication [Unknown]
  - Adverse event [Not Recovered/Not Resolved]
  - Off label use [Unknown]
